FAERS Safety Report 6077664-2 (Version None)
Quarter: 2009Q1

REPORT INFORMATION
  Report Type: 
  Country: None (occurrence: None)
  Receive Date: 20090213
  Receipt Date: 20090121
  Transmission Date: 20090719
  Serious: Yes (Hospitalization)
  Sender: FDA-Public Use
  Company Number: GB-PFIZER INC-2008096768

PATIENT

DRUGS (1)
  1. INSPRA [Suspect]

REACTIONS (1)
  - UNEVALUABLE EVENT [None]
